FAERS Safety Report 10028272 (Version 1)
Quarter: 2014Q1

REPORT INFORMATION
  Report Type: Spontaneous
  Country: US (occurrence: None)
  Receive Date: 20140318
  Receipt Date: 20140318
  Transmission Date: 20141002
  Serious: Yes (Other)
  Sender: FDA-Public Use
  Company Number: AUR-APL-2014-02652

PATIENT
  Age: 77 Year
  Sex: Male

DRUGS (7)
  1. ATENOLOL [Suspect]
     Indication: BLOOD PRESSURE
     Dosage: 1 D
     Route: 048
     Dates: start: 2003
  2. LISINOPRIL (LISINOPRIL) [Suspect]
     Indication: BLOOD PRESSURE
     Route: 048
     Dates: start: 2007
  3. CRESTOR (ROSUVASTATIN CALCIUM) [Suspect]
     Indication: ARTERIAL DISORDER
     Dosage: 1 D
     Route: 048
     Dates: start: 2005, end: 2005
  4. ASPIRIN (ACETYLSALICYLIC ACID) [Concomitant]
  5. MAGNESIUM SULFATE (MAGNESIUM SULFATE) [Concomitant]
  6. PRAVACHOL (PRAVASTATIN SODIUM) [Concomitant]
  7. LOVASTATIN (LOVASTATIN) [Concomitant]

REACTIONS (6)
  - Blood cholesterol increased [None]
  - Glucose tolerance impaired [None]
  - Hypoaesthesia [None]
  - High density lipoprotein decreased [None]
  - Nervous system disorder [None]
  - Treatment noncompliance [None]
